FAERS Safety Report 4859818-3 (Version None)
Quarter: 2005Q4

REPORT INFORMATION
  Report Type: 
  Country: None (occurrence: None)
  Receive Date: 20051219
  Receipt Date: 20051205
  Transmission Date: 20060501
  Serious: Yes (Hospitalization)
  Sender: FDA-Public Use
  Company Number: FR-GLAXOSMITHKLINE-B0402560A

PATIENT
  Age: 76 Year
  Sex: Female
  Weight: 53 kg

DRUGS (8)
  1. DEROXAT [Suspect]
     Dosage: 20MG PER DAY
     Route: 048
     Dates: start: 20050801, end: 20050927
  2. AZANTAC [Concomitant]
     Indication: NAUSEA
     Dosage: 150MG PER DAY
     Route: 048
  3. ATARAX [Concomitant]
     Route: 048
  4. LEVOTHYROXINE SODIUM [Concomitant]
     Indication: POST PROCEDURAL HYPOTHYROIDISM
     Dosage: 100MCG PER DAY
     Route: 048
  5. PRIMPERAN INJ [Concomitant]
     Indication: NAUSEA
     Route: 048
  6. MEDIATENSYL [Concomitant]
     Dosage: 60MG PER DAY
     Route: 048
  7. SPIRONOLACTONE [Concomitant]
  8. IMOVANE [Concomitant]

REACTIONS (2)
  - DIFFICULTY IN WALKING [None]
  - TREMOR [None]
